FAERS Safety Report 25179858 (Version 2)
Quarter: 2025Q2

REPORT INFORMATION
  Report Type: Report from Study
  Country: US (occurrence: US)
  Receive Date: 20250409
  Receipt Date: 20250513
  Transmission Date: 20250717
  Serious: Yes (Other)
  Sender: ALEXION PHARMACEUTICALS
  Company Number: US-AstraZeneca-CH-00841363A

PATIENT
  Age: 90 Year
  Weight: 72.574 kg

DRUGS (4)
  1. TEZEPELUMAB [Suspect]
     Active Substance: TEZEPELUMAB
     Indication: Asthma
     Dosage: 210 MILLIGRAM
  2. TEZEPELUMAB [Suspect]
     Active Substance: TEZEPELUMAB
  3. AUGMENTIN [Concomitant]
     Active Substance: AMOXICILLIN\CLAVULANATE POTASSIUM
     Route: 065
  4. PREDNISONE [Concomitant]
     Active Substance: PREDNISONE
     Route: 065

REACTIONS (49)
  - Basal cell carcinoma [Unknown]
  - Renal impairment [Unknown]
  - Chronic kidney disease [Unknown]
  - Vitamin B12 deficiency [Unknown]
  - Hyperlipidaemia [Unknown]
  - Gout [Unknown]
  - Anxiety [Unknown]
  - Depression [Unknown]
  - Insomnia [Unknown]
  - Hypersomnia [Unknown]
  - Obstructive sleep apnoea syndrome [Unknown]
  - Dry eye [Unknown]
  - Cerumen impaction [Unknown]
  - Essential hypertension [Unknown]
  - Supraventricular tachycardia [Unknown]
  - Diastolic dysfunction [Unknown]
  - Sinusitis [Unknown]
  - Rhinitis allergic [Unknown]
  - Bronchitis [Unknown]
  - Gastrooesophageal reflux disease [Unknown]
  - Pruritus [Unknown]
  - Asthma [Unknown]
  - Ataxia [Unknown]
  - Carotid bruit [Unknown]
  - Cough [Unknown]
  - Muscle spasms [Unknown]
  - Folliculitis [Unknown]
  - Back pain [Unknown]
  - Lumbar radiculopathy [Unknown]
  - Hypertonic bladder [Unknown]
  - Paraesthesia [Unknown]
  - Oedema peripheral [Unknown]
  - Productive cough [Unknown]
  - Prostatomegaly [Unknown]
  - Sciatica [Unknown]
  - Sinus congestion [Unknown]
  - Snoring [Unknown]
  - Somnolence [Unknown]
  - Tachycardia [Unknown]
  - Vertigo [Unknown]
  - Muscular weakness [Unknown]
  - Spondylolisthesis [Unknown]
  - Vitamin D deficiency [Unknown]
  - Blood triglycerides increased [Unknown]
  - Sputum discoloured [Unknown]
  - Pharyngeal disorder [Unknown]
  - Drug effect less than expected [Unknown]
  - Sputum discoloured [Unknown]
  - Pharyngeal disorder [Unknown]
